FAERS Safety Report 5535245-0 (Version None)
Quarter: 2007Q4

REPORT INFORMATION
  Report Type: 
  Country: None (occurrence: None)
  Receive Date: 20071206
  Receipt Date: 20071203
  Transmission Date: 20080405
  Serious: Yes (Death, Other)
  Sender: FDA-Public Use
  Company Number: JP-BRISTOL-MYERS SQUIBB COMPANY-14001705

PATIENT
  Age: 46 Year
  Sex: Male

DRUGS (3)
  1. CYCLOPHOSPHAMIDE [Suspect]
     Dosage: 1 DOSAGEFORM = 50-100 MG
  2. TACROLIMUS [Suspect]
     Dosage: CONCENTRACTION OF 20-25 NG/ML ON DAYS 0-7, 15-20 NG/ML ON DAYS 8-21, AND 5-10 NG/ML THEREAFTER.
  3. AZATHIOPRINE [Suspect]

REACTIONS (3)
  - CEREBRAL HAEMORRHAGE [None]
  - INTRA-ABDOMINAL HAEMORRHAGE [None]
  - THROMBOTIC MICROANGIOPATHY [None]
